FAERS Safety Report 25204350 (Version 1)
Quarter: 2025Q2

REPORT INFORMATION
  Report Type: Other
  Country: CN (occurrence: CN)
  Receive Date: 20250416
  Receipt Date: 20250416
  Transmission Date: 20250716
  Serious: Yes (Other)
  Sender: Kanchan Healthcare
  Company Number: CN-Kanchan Healthcare INC-2174922

PATIENT
  Age: 19 Year
  Sex: Male

DRUGS (12)
  1. DEXAMETHASONE [Suspect]
     Active Substance: DEXAMETHASONE
     Indication: T-cell type acute leukaemia
  2. LYOPHILIZED PEGASPARGASE [Suspect]
     Active Substance: PEGASPARGASE
  3. LYOPHILIZED PEGASPARGASE [Concomitant]
     Active Substance: PEGASPARGASE
  4. MERCAPTOPURINE [Concomitant]
     Active Substance: MERCAPTOPURINE
  5. CYTARABINE [Concomitant]
     Active Substance: CYTARABINE
  6. CYCLOPHOSPHAMIDE [Concomitant]
     Active Substance: CYCLOPHOSPHAMIDE
  7. CYTARABINE [Suspect]
     Active Substance: CYTARABINE
  8. METHOTREXATE [Suspect]
     Active Substance: METHOTREXATE
  9. SALINE [Suspect]
     Active Substance: SODIUM CHLORIDE
  10. VINDESINE [Suspect]
     Active Substance: VINDESINE
  11. IDARUBICIN HYDROCHLORIDE [Suspect]
     Active Substance: IDARUBICIN HYDROCHLORIDE
  12. CYCLOPHOSPHAMIDE [Suspect]
     Active Substance: CYCLOPHOSPHAMIDE

REACTIONS (2)
  - Myelosuppression [Unknown]
  - Infection [Unknown]
